FAERS Safety Report 8618094 (Version 3)
Quarter: 2012Q4

REPORT INFORMATION
  Report Type: 
  Country: JP (occurrence: JP)
  Receive Date: 20120615
  Receipt Date: 20120830
  Transmission Date: 20130627
  Serious: Yes (Hospitalization)
  Sender: FDA-Public Use
  Company Number: JP-EISAI INC-E2090-02168-SPO-JP

PATIENT
  Age: 29 Year
  Sex: Female

DRUGS (7)
  1. EXCEGRAN [Suspect]
     Indication: CONVULSION PROPHYLAXIS
     Route: 048
     Dates: start: 20120524, end: 20120609
  2. SUTENT [Suspect]
     Indication: ALVEOLAR SOFT PART SARCOMA METASTATIC
     Dosage: 37.5 mg daily
     Route: 048
     Dates: start: 20120201, end: 20120313
  3. SUTENT [Suspect]
     Dosage: 37.5 mg daily
     Route: 048
     Dates: start: 20120324, end: 20120608
  4. SUTENT [Suspect]
     Dosage: Unknown
     Route: 048
     Dates: start: 20120621
  5. TAKEPRON [Concomitant]
     Indication: REFLUX ESOPHAGITIS
     Dosage: 15 mg daily
     Route: 048
     Dates: start: 20120309
  6. ISOSORBIDE [Concomitant]
     Indication: BRAIN EDEMA
     Dosage: 120 ml daily
     Route: 048
     Dates: start: 20120412, end: 20120608
  7. GLYCEOL [Concomitant]
     Dosage: Unknown

REACTIONS (1)
  - Stevens-Johnson syndrome [Recovered/Resolved]
